FAERS Safety Report 5155316-0 (Version None)
Quarter: 2006Q4

REPORT INFORMATION
  Report Type: 
  Country: None (occurrence: None)
  Receive Date: 20061121
  Receipt Date: 20061114
  Transmission Date: 20070319
  Serious: Yes (Hospitalization)
  Sender: FDA-Public Use
  Company Number: US-AMGEN-US200249

PATIENT
  Sex: Female

DRUGS (3)
  1. NEUPOGEN [Suspect]
     Indication: CHEMOTHERAPY
     Route: 065
     Dates: start: 20060812
  2. ADRIAMYCIN PFS [Suspect]
     Route: 042
  3. CYTOXAN [Suspect]
     Route: 048

REACTIONS (6)
  - ABDOMINAL PAIN [None]
  - ABDOMINAL TENDERNESS [None]
  - DIARRHOEA HAEMORRHAGIC [None]
  - GASTROINTESTINAL HAEMORRHAGE [None]
  - HAEMATOCRIT DECREASED [None]
  - HELICOBACTER INFECTION [None]
